FAERS Safety Report 6048511-X (Version None)
Quarter: 2009Q1

REPORT INFORMATION
  Report Type: 
  Country: None (occurrence: None)
  Receive Date: 20090123
  Receipt Date: 20090116
  Transmission Date: 20090719
  Serious: Yes (Other)
  Sender: FDA-Public Use
  Company Number: B0555319A

PATIENT
  Age: 29 Year
  Sex: Female

DRUGS (2)
  1. COMBIVIR [Suspect]
     Indication: ANTIVIRAL TREATMENT
     Route: 048
     Dates: start: 20080610, end: 20080831
  2. KALETRA [Suspect]
     Indication: ANTIVIRAL TREATMENT
     Route: 048
     Dates: start: 20080610, end: 20080831

REACTIONS (5)
  - DRUG EXPOSURE DURING PREGNANCY [None]
  - EXSANGUINATION [None]
  - HAEMORRHAGE FOETAL [None]
  - STILLBIRTH [None]
  - VASA PRAEVIA [None]
